FAERS Safety Report 4733046-4 (Version None)
Quarter: 2005Q3

REPORT INFORMATION
  Report Type: 
  Country: None (occurrence: None)
  Receive Date: 20050801
  Receipt Date: 20050801
  Transmission Date: 20060218
  Serious: Yes (Hospitalization)
  Sender: FDA-Public Use
  Company Number: None

PATIENT
  Age: 26 Year
  Sex: Male
  Weight: 81 kg

DRUGS (1)
  1. GLEEVEC [Suspect]
     Indication: LEUKAEMIA
     Dosage: 600 MG ONCE DAILY ORAL
     Route: 048
     Dates: start: 20050623, end: 20050708

REACTIONS (2)
  - SPLENECTOMY [None]
  - SPLENIC ABSCESS [None]
